FAERS Safety Report 6665153-3 (Version None)
Quarter: 2010Q2

REPORT INFORMATION
  Report Type: 
  Country: None (occurrence: None)
  Receive Date: 20100402
  Receipt Date: 20100329
  Transmission Date: 20101027
  Serious: Yes (Other)
  Sender: FDA-Public Use
  Company Number: IT-TEVA-229459ISR

PATIENT
  Age: 30 Year
  Sex: Female

DRUGS (2)
  1. METHOTREXATE [Suspect]
     Dosage: UP TO 20 MG/WEEK
  2. ADALIMUMAB [Suspect]
     Dates: start: 20050101

REACTIONS (1)
  - SARCOIDOSIS [None]
